FAERS Safety Report 9605831 (Version 2)
Quarter: 2013Q4

REPORT INFORMATION
  Report Type: Spontaneous
  Country: US (occurrence: US)
  Receive Date: 20131008
  Receipt Date: 20131008
  Transmission Date: 20140711
  Serious: No
  Sender: FDA-Public Use
  Company Number: US-AMGEN-USASP2013055527

PATIENT
  Age: 82 Year
  Sex: Male
  Weight: 96 kg

DRUGS (4)
  1. XGEVA [Suspect]
     Indication: SQUAMOUS CELL CARCINOMA OF LUNG
     Dosage: 120 MG, Q4WK
     Route: 058
     Dates: start: 20130312, end: 20130409
  2. CETUXIMAB [Concomitant]
     Indication: LUNG NEOPLASM MALIGNANT
     Dosage: 500 UNK, QWK
     Route: 042
     Dates: start: 20130402, end: 20130528
  3. CISPLATIN [Concomitant]
     Indication: LUNG NEOPLASM MALIGNANT
     Dosage: 120 UNK, UNK
     Route: 042
     Dates: start: 20130402, end: 20130528
  4. VINORELBINE [Concomitant]
     Indication: LUNG NEOPLASM MALIGNANT
     Dosage: 40 UNK, UNK
     Route: 042
     Dates: start: 20130402, end: 20130528

REACTIONS (1)
  - Hypophosphataemia [Unknown]
